FAERS Safety Report 16222262 (Version 1)
Quarter: 2019Q2

REPORT INFORMATION
  Report Type: Report from Study
  Country: DE (occurrence: DE)
  Receive Date: 20190422
  Receipt Date: 20190422
  Transmission Date: 20190711
  Serious: Yes (Death, Life-Threatening, Hospitalization)
  Sender: FDA-Public Use
  Company Number: PHHO2017DE004915

PATIENT
  Age: 70 Year
  Sex: Male
  Weight: 100 kg

DRUGS (7)
  1. MIDOSTAURIN [Suspect]
     Active Substance: MIDOSTAURIN
     Indication: ACUTE MYELOID LEUKAEMIA
     Dosage: 100 MG, UNK
     Route: 048
     Dates: start: 20170215, end: 20170301
  2. CYTARABINE. [Suspect]
     Active Substance: CYTARABINE
     Indication: ACUTE MYELOID LEUKAEMIA
     Dosage: 200 MG, UNK
     Route: 042
     Dates: start: 20170208, end: 20170214
  3. CASPOFUNGINE [Concomitant]
     Active Substance: CASPOFUNGIN
     Indication: PYREXIA
     Dosage: UNK
     Route: 065
     Dates: end: 20170228
  4. LINEZOLID. [Concomitant]
     Active Substance: LINEZOLID
     Indication: COLITIS
     Dosage: UNK
     Route: 065
     Dates: end: 20170228
  5. DAUNORUBICIN [Suspect]
     Active Substance: DAUNORUBICIN
     Indication: ACUTE MYELOID LEUKAEMIA
     Dosage: 120 MG, UNK
     Route: 042
     Dates: start: 20170208, end: 20170210
  6. TAZOBACTAM [Concomitant]
     Active Substance: TAZOBACTAM
     Indication: PYREXIA
     Dosage: UNK
     Route: 065
     Dates: end: 20170228
  7. MEROPENEM. [Concomitant]
     Active Substance: MEROPENEM
     Indication: COLITIS
     Dosage: UNK
     Route: 065
     Dates: end: 20170228

REACTIONS (2)
  - Sepsis [Fatal]
  - Multiple organ dysfunction syndrome [Fatal]

NARRATIVE: CASE EVENT DATE: 20170301
